FAERS Safety Report 22221143 (Version 2)
Quarter: 2023Q2

REPORT INFORMATION
  Report Type: Spontaneous
  Country: GB (occurrence: GB)
  Receive Date: 20230418
  Receipt Date: 20230607
  Transmission Date: 20230722
  Serious: Yes (Hospitalization, Other)
  Sender: FDA-Public Use
  Company Number: GB-ROCHE-1609476

PATIENT
  Age: 50 Year
  Sex: Female

DRUGS (28)
  1. DOCETAXEL [Suspect]
     Active Substance: DOCETAXEL
     Indication: Breast cancer metastatic
     Dosage: 130 MG, TIW
     Route: 042
     Dates: start: 20150630, end: 20151106
  2. TRASTUZUMAB [Suspect]
     Active Substance: TRASTUZUMAB
     Indication: Breast cancer metastatic
     Dosage: 600 MG, TIW
     Route: 058
     Dates: start: 20150629
  3. PERTUZUMAB [Suspect]
     Active Substance: PERTUZUMAB
     Indication: Breast cancer metastatic
     Dosage: 840 MG, TIW
     Route: 042
     Dates: start: 20150629
  4. SERTRALINE [Concomitant]
     Active Substance: SERTRALINE HYDROCHLORIDE
     Indication: Product used for unknown indication
     Dosage: 50 MG, QD
     Route: 048
     Dates: start: 201601
  5. SERTRALINE [Concomitant]
     Active Substance: SERTRALINE HYDROCHLORIDE
     Dosage: 100 MG, QD
     Route: 048
     Dates: start: 20160715, end: 201612
  6. SERTRALINE [Concomitant]
     Active Substance: SERTRALINE HYDROCHLORIDE
     Dosage: 75 MG, QD
     Route: 048
     Dates: start: 201612, end: 201702
  7. SERTRALINE [Concomitant]
     Active Substance: SERTRALINE HYDROCHLORIDE
     Dosage: 62.5 MG, QD
     Route: 048
     Dates: start: 201702, end: 201709
  8. SERTRALINE [Concomitant]
     Active Substance: SERTRALINE HYDROCHLORIDE
     Dosage: 50 MG, QD
     Route: 048
     Dates: start: 201709, end: 201711
  9. SERTRALINE [Concomitant]
     Active Substance: SERTRALINE HYDROCHLORIDE
     Dosage: 37.5 MG, QD
     Route: 048
     Dates: start: 201711, end: 201712
  10. SERTRALINE [Concomitant]
     Active Substance: SERTRALINE HYDROCHLORIDE
     Dosage: 12.5 MG, QD
     Route: 048
     Dates: start: 201712, end: 201803
  11. LITHIUM [Concomitant]
     Active Substance: LITHIUM
     Indication: Product used for unknown indication
     Dosage: 400 MG, QD
     Route: 048
     Dates: start: 20161202, end: 201709
  12. LITHIUM [Concomitant]
     Active Substance: LITHIUM
     Dosage: 500 MG, QD
     Route: 048
     Dates: start: 201709, end: 201712
  13. LITHIUM [Concomitant]
     Active Substance: LITHIUM
     Dosage: 400 MG, QD
     Route: 048
     Dates: start: 201712, end: 20181222
  14. LITHIUM [Concomitant]
     Active Substance: LITHIUM
     Dosage: 250 MG, QD
     Route: 048
     Dates: start: 20181223, end: 20190312
  15. LITHIUM [Concomitant]
     Active Substance: LITHIUM
     Dosage: 150 MG, QD
     Route: 048
     Dates: start: 20190313
  16. DIAZEPAM [Concomitant]
     Active Substance: DIAZEPAM
     Indication: Product used for unknown indication
     Dosage: 6.5 MG, QD
     Route: 048
     Dates: start: 201612, end: 201712
  17. DIAZEPAM [Concomitant]
     Active Substance: DIAZEPAM
     Dosage: 4 MG, QD
     Route: 048
     Dates: start: 201709, end: 201712
  18. DIAZEPAM [Concomitant]
     Active Substance: DIAZEPAM
     Dosage: 3.5 MG, QD
     Route: 048
     Dates: start: 201712
  19. PYRIDOXINE [Concomitant]
     Active Substance: PYRIDOXINE
     Indication: Neuropathy peripheral
     Dosage: 50 MG, TID
     Route: 048
     Dates: start: 20150807
  20. PYRIDOXINE [Concomitant]
     Active Substance: PYRIDOXINE
     Indication: Neuropathy peripheral
  21. LIOTHYRONINE [Concomitant]
     Active Substance: LIOTHYRONINE
     Indication: Product used for unknown indication
     Dosage: 10 MG, QD
     Route: 048
     Dates: start: 20160927
  22. MIRTAZAPINE [Concomitant]
     Active Substance: MIRTAZAPINE
     Indication: Product used for unknown indication
     Dosage: 15 MG, QD
     Route: 048
     Dates: end: 2016
  23. MIRTAZAPINE [Concomitant]
     Active Substance: MIRTAZAPINE
     Dosage: 30 MG, QD
     Route: 048
     Dates: start: 2016, end: 20160715
  24. MIRTAZAPINE [Concomitant]
     Active Substance: MIRTAZAPINE
     Dosage: 15 MG, QD
     Route: 048
     Dates: start: 20160716, end: 201612
  25. MIRTAZAPINE [Concomitant]
     Active Substance: MIRTAZAPINE
     Dosage: 30 MG, QD
     Route: 048
     Dates: start: 201612, end: 201803
  26. MIRTAZAPINE [Concomitant]
     Active Substance: MIRTAZAPINE
     Dosage: 15 MG, QD
     Route: 048
     Dates: start: 201709, end: 201712
  27. MIRTAZAPINE [Concomitant]
     Active Substance: MIRTAZAPINE
     Dosage: 7.5 MG, QD
     Route: 048
     Dates: start: 201712, end: 201803
  28. MIRTAZAPINE [Concomitant]
     Active Substance: MIRTAZAPINE
     Dosage: 3.75 MG, QD
     Route: 048
     Dates: start: 201803, end: 201807

REACTIONS (4)
  - Neutropenic sepsis [Recovered/Resolved]
  - Breast pain [Recovered/Resolved]
  - Osteopenia [Not Recovered/Not Resolved]
  - Coccydynia [Recovered/Resolved]

NARRATIVE: CASE EVENT DATE: 20150709
